FAERS Safety Report 8908709 (Version 3)
Quarter: 2017Q1

REPORT INFORMATION
  Report Type: Spontaneous
  Country: JP (occurrence: JP)
  Receive Date: 20121030
  Receipt Date: 20170112
  Transmission Date: 20170429
  Serious: Yes (Death, Life-Threatening, Other)
  Sender: FDA-Public Use
  Company Number: JP-009507513-2010SP035031

PATIENT
  Age: 63 Year
  Sex: Female

DRUGS (4)
  1. TEMODAL [Suspect]
     Active Substance: TEMOZOLOMIDE
     Indication: GLIOMA
  2. FERON [Concomitant]
     Active Substance: INTERFERON BETA
     Dosage: 6 MILLION IU, QD
     Route: 065
     Dates: start: 20100121, end: 20100217
  3. TEMODAL [Suspect]
     Active Substance: TEMOZOLOMIDE
     Indication: OLIGOASTROCYTOMA
     Dosage: 100 MG, QD
     Route: 048
     Dates: start: 20100121, end: 20100304
  4. PREDNISOLONE. [Suspect]
     Active Substance: PREDNISOLONE
     Indication: GLIOMA
     Dosage: UNK
     Route: 065

REACTIONS (3)
  - Lymphocyte count decreased [Unknown]
  - Acute hepatitis B [Fatal]
  - Gastrointestinal haemorrhage [Unknown]

NARRATIVE: CASE EVENT DATE: 20100217
